FAERS Safety Report 4302928-X (Version None)
Quarter: 2004Q1

REPORT INFORMATION
  Report Type: 
  Country: None (occurrence: None)
  Receive Date: 20040223
  Receipt Date: 20040223
  Transmission Date: 20041129
  Serious: Yes (Hospitalization)
  Sender: FDA-Public Use
  Company Number: None

PATIENT
  Age: 77 Year
  Sex: Male
  Weight: 101 kg

DRUGS (9)
  1. METOLAZONE [Suspect]
     Indication: HYPERTENSION
     Dosage: 5 MG DAILY ORAL
     Route: 048
     Dates: start: 20030325, end: 20030529
  2. FUROSEMIDE [Concomitant]
  3. WARFARIN [Concomitant]
  4. ATENOLOL [Concomitant]
  5. TERAZOCIN [Concomitant]
  6. AMIODARONE HCL [Concomitant]
  7. RANITIDINE [Concomitant]
  8. INSULIN [Concomitant]
  9. GEMFIBROZIL [Concomitant]

REACTIONS (6)
  - FALL [None]
  - HYPERHIDROSIS [None]
  - INTERNATIONAL NORMALISED RATIO INCREASED [None]
  - RASH [None]
  - RENAL FAILURE ACUTE [None]
  - SYNCOPE [None]
